FAERS Safety Report 7668079-1 (Version None)
Quarter: 2011Q3

REPORT INFORMATION
  Report Type: 
  Country: None (occurrence: None)
  Receive Date: 20110808
  Receipt Date: 20110805
  Transmission Date: 20111222
  Serious: No
  Sender: FDA-Public Use
  Company Number: US-PFIZER INC-2011179940

PATIENT
  Sex: Female

DRUGS (3)
  1. CYMBALTA [Concomitant]
     Dosage: UNK
  2. LIPITOR [Suspect]
     Indication: BLOOD CHOLESTEROL INCREASED
     Dosage: 10 MG, 1X/DAY
     Route: 048
     Dates: start: 20110802
  3. CARVEDILOL [Concomitant]
     Dosage: UNK

REACTIONS (2)
  - ABNORMAL DREAMS [None]
  - INSOMNIA [None]
